FAERS Safety Report 22345526 (Version 1)
Quarter: 2023Q2

REPORT INFORMATION
  Report Type: Spontaneous
  Country: US (occurrence: US)
  Receive Date: 20230519
  Receipt Date: 20230519
  Transmission Date: 20230722
  Serious: No
  Sender: FDA-Public Use
  Company Number: US-INSUD PHARMA-2305US02850

PATIENT

DRUGS (1)
  1. TRI-LO- ESTARYLLA [Suspect]
     Active Substance: ETHINYL ESTRADIOL\NORGESTIMATE
     Indication: Contraception
     Dosage: QD
     Route: 048
     Dates: start: 20230312

REACTIONS (2)
  - Intermenstrual bleeding [Not Recovered/Not Resolved]
  - Heavy menstrual bleeding [Recovered/Resolved]

NARRATIVE: CASE EVENT DATE: 20230327
